FAERS Safety Report 5406152-9 (Version None)
Quarter: 2007Q3

REPORT INFORMATION
  Report Type: 
  Country: None (occurrence: None)
  Receive Date: 20070801
  Receipt Date: 20070115
  Transmission Date: 20080115
  Serious: Yes (Life-Threatening, Hospitalization)
  Sender: FDA-Public Use
  Company Number: 6025158

PATIENT
  Age: 64 Year
  Sex: Female

DRUGS (7)
  1. AMOXICILLIN [Suspect]
     Indication: LOWER RESPIRATORY TRACT INFECTION
     Dosage: 1500 MG (500 MG, 3 IN 1 D), ORAL
     Route: 048
     Dates: start: 20060508, end: 20060512
  2. NAPROXEN [Suspect]
     Indication: ARTHRALGIA
     Dosage: 750 MG (250 MG, 3 IN 1 D), ORAL
     Route: 048
     Dates: start: 20051004
  3. IBUPROFEN [Suspect]
     Indication: DRUG USE FOR UNKNOWN INDICATION
  4. ADCAL-D3 (COLECALCIFEROL, CALCIUM CARBONATE) [Concomitant]
  5. BUMETANIDE [Concomitant]
  6. CODEINE PHOSPHATE AND ACETAMINOPHEN [Concomitant]
  7. KLIOVANCE (ESTRADIOL, NORETHISTERONE ACETATE) [Concomitant]

REACTIONS (4)
  - ENCEPHALITIS [None]
  - HEPATIC NECROSIS [None]
  - JAUNDICE [None]
  - LIVER FUNCTION TEST ABNORMAL [None]
